FAERS Safety Report 25129393 (Version 3)
Quarter: 2025Q2

REPORT INFORMATION
  Report Type: Spontaneous
  Country: PT (occurrence: PT)
  Receive Date: 20250327
  Receipt Date: 20250520
  Transmission Date: 20250716
  Serious: Yes (Other)
  Sender: AUROBINDO
  Company Number: PT-MLMSERVICE-20250306-PI437965-00246-2

PATIENT
  Age: 72 Year
  Sex: Female

DRUGS (24)
  1. OLANZAPINE [Suspect]
     Active Substance: OLANZAPINE
     Indication: Dementia with Lewy bodies
     Dosage: 10 MILLIGRAM, ONCE A DAY (TITRATED TO
     Route: 065
     Dates: start: 202312, end: 202401
  2. OLANZAPINE [Suspect]
     Active Substance: OLANZAPINE
     Indication: Anxiety
     Dosage: 7.5 MILLIGRAM, ONCE A DAY (INITIALLY REDUCE TO 7.5 MG AND LATER TO 5 MG)
     Route: 065
     Dates: start: 202401, end: 202403
  3. OLANZAPINE [Suspect]
     Active Substance: OLANZAPINE
     Indication: Hallucination, auditory
     Dosage: 5 MILLIGRAM, ONCE A DAY (INITIALLY REDUCE TO 7.5 MG AND LATER TO 5 MG)
     Route: 065
     Dates: start: 202403, end: 202405
  4. OLANZAPINE [Suspect]
     Active Substance: OLANZAPINE
     Indication: Persecutory delusion
  5. OLANZAPINE [Suspect]
     Active Substance: OLANZAPINE
     Indication: Hallucination, visual
  6. OLANZAPINE [Suspect]
     Active Substance: OLANZAPINE
     Indication: Disturbance in attention
  7. OLANZAPINE [Suspect]
     Active Substance: OLANZAPINE
     Indication: Irritability
  8. OLANZAPINE [Suspect]
     Active Substance: OLANZAPINE
     Indication: Affect lability
  9. OLANZAPINE [Suspect]
     Active Substance: OLANZAPINE
     Indication: Thinking abnormal
  10. CLOZAPINE [Suspect]
     Active Substance: CLOZAPINE
     Indication: Dementia with Lewy bodies
     Dosage: 25 MILLIGRAM, ONCE A DAY
     Route: 065
     Dates: start: 202405, end: 202406
  11. CLOZAPINE [Suspect]
     Active Substance: CLOZAPINE
     Dosage: 12.5 MILLIGRAM, ONCE A DAY
     Route: 065
     Dates: start: 202406, end: 202407
  12. CARBIDOPA\LEVODOPA [Suspect]
     Active Substance: CARBIDOPA\LEVODOPA
     Indication: Bradykinesia
     Dosage: 1 DOSAGE FORM, 3 TIMES A DAY (THREE TIMES DAILY; 150/2MG 3ID)
     Route: 065
     Dates: start: 202401
  13. CARBIDOPA\LEVODOPA [Suspect]
     Active Substance: CARBIDOPA\LEVODOPA
     Indication: Tremor
  14. CARBIDOPA\LEVODOPA [Suspect]
     Active Substance: CARBIDOPA\LEVODOPA
     Indication: Gait disturbance
  15. ESCITALOPRAM [Suspect]
     Active Substance: ESCITALOPRAM OXALATE
     Indication: Depression
     Route: 065
     Dates: start: 2022, end: 202312
  16. ESCITALOPRAM [Suspect]
     Active Substance: ESCITALOPRAM OXALATE
     Indication: Anxiety
     Route: 065
     Dates: start: 202312, end: 202403
  17. ESCITALOPRAM [Suspect]
     Active Substance: ESCITALOPRAM OXALATE
     Route: 065
     Dates: start: 202403
  18. DONEPEZIL HYDROCHLORIDE [Suspect]
     Active Substance: DONEPEZIL HYDROCHLORIDE
     Indication: Cognitive disorder
     Dosage: 10 MILLIGRAM, ONCE A DAY
     Route: 065
     Dates: start: 202401
  19. DONEPEZIL HYDROCHLORIDE [Suspect]
     Active Substance: DONEPEZIL HYDROCHLORIDE
     Indication: Memory impairment
  20. CARBIDOPA AND LEVODOPA [Concomitant]
     Active Substance: CARBIDOPA\LEVODOPA
     Indication: Bradykinesia
     Route: 065
  21. CARBIDOPA AND LEVODOPA [Concomitant]
     Active Substance: CARBIDOPA\LEVODOPA
     Indication: Tremor
  22. CARBIDOPA AND LEVODOPA [Concomitant]
     Active Substance: CARBIDOPA\LEVODOPA
     Indication: Gait disturbance
  23. ESCITALOPRAM [Concomitant]
     Active Substance: ESCITALOPRAM OXALATE
     Indication: Depression
     Route: 065
  24. ESCITALOPRAM [Concomitant]
     Active Substance: ESCITALOPRAM OXALATE
     Indication: Anxiety

REACTIONS (6)
  - Orthostatic hypotension [Recovered/Resolved]
  - Weight increased [Recovering/Resolving]
  - Parkinsonism [Recovered/Resolved]
  - Condition aggravated [Recovering/Resolving]
  - Adverse drug reaction [Recovering/Resolving]
  - Off label use [Unknown]

NARRATIVE: CASE EVENT DATE: 20240101
